FAERS Safety Report 12391759 (Version 2)
Quarter: 2016Q3

REPORT INFORMATION
  Report Type: Spontaneous
  Country: DE (occurrence: DE)
  Receive Date: 20160522
  Receipt Date: 20160708
  Transmission Date: 20161109
  Serious: Yes (Other)
  Sender: FDA-Public Use
  Company Number: DE-MYLANLABS-2016M1019972

PATIENT

DRUGS (7)
  1. CELESTAN                           /00008501/ [Concomitant]
     Indication: MATERNAL THERAPY TO ENHANCE FOETAL LUNG MATURITY
     Dosage: UNK (12 [MG/D ])
     Route: 030
     Dates: start: 20150509, end: 20150510
  2. AMOXICILLIN. [Concomitant]
     Active Substance: AMOXICILLIN
     Indication: CYSTITIS
     Dosage: UNK
     Route: 048
     Dates: start: 20141229, end: 20150102
  3. CITALOPRAM [Suspect]
     Active Substance: CITALOPRAM HYDROBROMIDE
     Indication: DEPRESSION
     Dosage: 20 MG, QD (20 [MG/D ])
     Route: 048
     Dates: start: 20150509, end: 20150512
  4. CLONT                              /00012501/ [Concomitant]
     Indication: GARDNERELLA TEST POSITIVE
     Dosage: UNK (2 [G/D ])
     Route: 048
     Dates: start: 20150509, end: 20150516
  5. FOLIO FORTE [Concomitant]
     Active Substance: FOLIC ACID\VITAMINS
     Indication: PROPHYLAXIS OF NEURAL TUBE DEFECT
     Dosage: UNK (0.8 [MG/D ])
     Route: 048
  6. UTROGEST [Concomitant]
     Active Substance: PROGESTERONE
     Indication: CERVICAL INCOMPETENCE
     Dosage: UNK (200 [MG/D (0-0-0-200) ])
     Route: 065
     Dates: start: 20150516, end: 20150516
  7. MAGNESIUM [Concomitant]
     Active Substance: MAGNESIUM
     Indication: CERVICAL INCOMPETENCE
     Dosage: UNK
     Route: 048
     Dates: start: 20150516, end: 20150516

REACTIONS (2)
  - Exposure during pregnancy [Unknown]
  - Foetal hypokinesia [Recovered/Resolved]
